FAERS Safety Report 14434905 (Version 1)
Quarter: 2018Q1

REPORT INFORMATION
  Report Type: Spontaneous
  Country: FR (occurrence: FR)
  Receive Date: 20180125
  Receipt Date: 20180125
  Transmission Date: 20180509
  Serious: Yes (Hospitalization)
  Sender: FDA-Public Use
  Company Number: FR-BAUSCH-BL-2018-001705

PATIENT
  Age: 47 Year
  Sex: Female

DRUGS (5)
  1. PIVALONE (NEOMYCIN\POLYMYXIN B\TIXOCORTOL) [Suspect]
     Active Substance: NEOMYCIN\POLYMYXIN B\TIXOCORTOL
     Indication: NASOPHARYNGITIS
     Dosage: UNSPECIFIED
     Route: 045
  2. TOBRAMYCINE [Suspect]
     Active Substance: TOBRAMYCIN SULFATE
     Indication: CONJUNCTIVITIS
     Route: 047
     Dates: start: 20171212, end: 20171220
  3. AMOXICILLINE [Suspect]
     Active Substance: AMOXICILLIN
     Indication: NASOPHARYNGITIS
     Route: 048
     Dates: start: 20171212, end: 20171220
  4. PARACETAMOL [Suspect]
     Active Substance: ACETAMINOPHEN
     Indication: NASOPHARYNGITIS
     Dosage: IF NECESSARY
     Route: 048
     Dates: start: 20171212, end: 20171220
  5. PREDNISOLONE. [Suspect]
     Active Substance: PREDNISOLONE
     Indication: NASOPHARYNGITIS
     Route: 048
     Dates: start: 20171212, end: 20171220

REACTIONS (1)
  - Acute generalised exanthematous pustulosis [Not Recovered/Not Resolved]

NARRATIVE: CASE EVENT DATE: 20171216
